FAERS Safety Report 13071642 (Version 1)
Quarter: 2016Q4

REPORT INFORMATION
  Report Type: Other
  Country: DK (occurrence: DK)
  Receive Date: 20161229
  Receipt Date: 20161229
  Transmission Date: 20170207
  Serious: Yes (Hospitalization)
  Sender: FDA-Public Use
  Company Number: DK-CELLTRION INC.-2016DK014035

PATIENT

DRUGS (3)
  1. REMSIMA [Suspect]
     Active Substance: INFLIXIMAB
     Dosage: 1 DF, I ALTERNATING WITH 3 INJECTIONS 10 JUN, 24 JUN AND 21 JUL 2016
     Route: 042
     Dates: start: 20160721, end: 20160721
  2. REMSIMA [Suspect]
     Active Substance: INFLIXIMAB
     Dosage: 1 DF, I ALTERNATING WITH 3 INJECTIONS 10 JUN, 24 JUN AND 21 JUL 2016
     Route: 042
     Dates: start: 20160624, end: 20160624
  3. REMSIMA [Suspect]
     Active Substance: INFLIXIMAB
     Indication: PSORIATIC ARTHROPATHY
     Dosage: 1 DF, I ALTERNATING WITH 3 INJECTIONS 10 JUN, 24 JUN AND 21 JUL 2016.
     Route: 042
     Dates: start: 20160610, end: 20160610

REACTIONS (10)
  - Dizziness [Unknown]
  - Pruritus [Unknown]
  - Abdominal pain upper [Unknown]
  - Drug-induced liver injury [Recovering/Resolving]
  - Chromaturia [Unknown]
  - Abdominal distension [Unknown]
  - Headache [Unknown]
  - Hepatic enzyme increased [Recovering/Resolving]
  - Oedema [Unknown]
  - Nausea [Unknown]

NARRATIVE: CASE EVENT DATE: 20160912
